FAERS Safety Report 5465733-7 (Version None)
Quarter: 2007Q3

REPORT INFORMATION
  Report Type: 
  Country: None (occurrence: None)
  Receive Date: 20070919
  Receipt Date: 20070919
  Transmission Date: 20080115
  Serious: Yes (Other)
  Sender: FDA-Public Use
  Company Number: None

PATIENT
  Age: 47 Year
  Sex: Female

DRUGS (1)
  1. VIVELLE-DOT [Suspect]
     Indication: MENOPAUSE
     Dosage: APPLY 1 PATCH TWICE A WEEK
     Dates: start: 20070525, end: 20070528

REACTIONS (1)
  - DRUG HYPERSENSITIVITY [None]
